FAERS Safety Report 6984532-8 (Version None)
Quarter: 2010Q3

REPORT INFORMATION
  Report Type: 
  Country: None (occurrence: None)
  Receive Date: 20100913
  Receipt Date: 20100826
  Transmission Date: 20110219
  Serious: Yes (Hospitalization, Disabling, Other)
  Sender: FDA-Public Use
  Company Number: 2010P1000848

PATIENT
  Age: 82 Year
  Sex: Female
  Weight: 63.5036 kg

DRUGS (9)
  1. WARFARIN SODIUM [Suspect]
     Indication: ATRIAL FIBRILLATION
     Dosage: 3 MG;5 DAYS A WEEK; PO, 4.5 MG;2 DAYS A WEEK; PO
     Route: 048
     Dates: start: 20091201
  2. WARFARIN SODIUM [Suspect]
     Indication: ATRIAL FIBRILLATION
     Dosage: 3 MG;5 DAYS A WEEK; PO, 4.5 MG;2 DAYS A WEEK; PO
     Route: 048
     Dates: start: 20091201
  3. ATENOLOL [Concomitant]
  4. LOVASTATIN [Concomitant]
  5. ASPIRIN [Concomitant]
  6. VITAMINS [Concomitant]
  7. MAGNESIUM [Concomitant]
  8. CO Q 10 [Concomitant]
  9. ARTHRITIS MEDICATION [Concomitant]

REACTIONS (2)
  - CARPAL TUNNEL SYNDROME [None]
  - THROMBOTIC STROKE [None]
